FAERS Safety Report 7427999-3 (Version None)
Quarter: 2011Q2

REPORT INFORMATION
  Report Type: 
  Country: None (occurrence: None)
  Receive Date: 20110418
  Receipt Date: 20110418
  Transmission Date: 20111010
  Serious: Yes (Hospitalization)
  Sender: FDA-Public Use
  Company Number: None

PATIENT
  Sex: Male
  Weight: 2.803 kg

DRUGS (2)
  1. REMERON [Suspect]
     Indication: SCHIZOPHRENIA
     Dosage: 45MG TAKEN BY MOTHER NIGHTLY PO
     Route: 048
     Dates: start: 20101001, end: 20110417
  2. HALDOL [Suspect]
     Indication: SCHIZOPHRENIA
     Dosage: 6MG TAKEN BY MOTHER NIGHTLY PO
     Route: 048
     Dates: start: 20101001, end: 20110417

REACTIONS (8)
  - NEONATAL TACHYPNOEA [None]
  - DRUG WITHDRAWAL SYNDROME NEONATAL [None]
  - AGITATION NEONATAL [None]
  - TREMOR NEONATAL [None]
  - INFANTILE APNOEIC ATTACK [None]
  - ARRESTED LABOUR [None]
  - MATERNAL DRUGS AFFECTING FOETUS [None]
  - CAESAREAN SECTION [None]
